FAERS Safety Report 8012493-1 (Version None)
Quarter: 2011Q4

REPORT INFORMATION
  Report Type: 
  Country: None (occurrence: None)
  Receive Date: 20111229
  Receipt Date: 20111213
  Transmission Date: 20120403
  Serious: Yes (Other)
  Sender: FDA-Public Use
  Company Number: US-ROCHE-790242

PATIENT
  Sex: Female
  Weight: 74.91 kg

DRUGS (3)
  1. CONTRACEPTIVE PILL [Concomitant]
     Indication: CONTRACEPTION
  2. ACCUTANE [Suspect]
     Indication: ACNE
     Route: 048
     Dates: start: 20010301, end: 20010601
  3. IBUPROFEN [Concomitant]
     Indication: PAIN

REACTIONS (10)
  - COLITIS ULCERATIVE [None]
  - BLOOD CHOLESTEROL INCREASED [None]
  - DRY SKIN [None]
  - BLOOD TRIGLYCERIDES INCREASED [None]
  - DIVERTICULITIS [None]
  - INFLAMMATORY BOWEL DISEASE [None]
  - HEPATIC ENZYME INCREASED [None]
  - EMOTIONAL DISTRESS [None]
  - DEPRESSION [None]
  - BLOOD ALKALINE PHOSPHATASE INCREASED [None]
